FAERS Safety Report 6401724-7 (Version None)
Quarter: 2009Q4

REPORT INFORMATION
  Report Type: 
  Country: None (occurrence: None)
  Receive Date: 20091015
  Receipt Date: 20091006
  Transmission Date: 20100525
  Serious: Yes (Hospitalization)
  Sender: FDA-Public Use
  Company Number: US-ELI_LILLY_AND_COMPANY-US200909000576

PATIENT
  Sex: Female

DRUGS (3)
  1. FORTEO [Suspect]
     Dates: start: 20090101
  2. VITAMIN D [Concomitant]
  3. CALCIUM [Concomitant]
     Dosage: 1800 U, DAILY (1/D)

REACTIONS (6)
  - CONFUSIONAL STATE [None]
  - FALL [None]
  - FOOT FRACTURE [None]
  - INJECTION SITE IRRITATION [None]
  - MEMORY IMPAIRMENT [None]
  - PRODUCT QUALITY ISSUE [None]
